FAERS Safety Report 8995826 (Version 1)
Quarter: 2013Q1

REPORT INFORMATION
  Report Type: Spontaneous
  Country: GB (occurrence: GB)
  Receive Date: 20130103
  Receipt Date: 20130103
  Transmission Date: 20140127
  Serious: Yes (Other)
  Sender: FDA-Public Use
  Company Number: GB-ABBOTT-13P-167-1030136-00

PATIENT
  Age: 30 Year
  Sex: Female

DRUGS (4)
  1. EPILIM CHRONO [Suspect]
     Indication: MIGRAINE WITH AURA
     Dates: start: 20121101
  2. EPILIM CHRONO [Suspect]
  3. EPILIM CHRONO [Suspect]
     Dates: end: 20121203
  4. ZOMIG [Concomitant]
     Indication: PRODUCT USED FOR UNKNOWN INDICATION

REACTIONS (8)
  - Depression suicidal [Unknown]
  - Suicidal ideation [Unknown]
  - Depressed mood [Unknown]
  - Dysarthria [Unknown]
  - Social avoidant behaviour [Unknown]
  - Somnolence [Unknown]
  - Fatigue [Unknown]
  - Drug ineffective [Unknown]
